FAERS Safety Report 10405566 (Version 2)
Quarter: 2018Q2

REPORT INFORMATION
  Report Type: Report from Study
  Country: US (occurrence: US)
  Receive Date: 20140825
  Receipt Date: 20180423
  Transmission Date: 20180711
  Serious: No
  Sender: FDA-Public Use
  Company Number: US-SA-2014SA110999

PATIENT
  Sex: Male

DRUGS (3)
  1. CEREZYME [Suspect]
     Active Substance: IMIGLUCERASE
     Indication: GAUCHER^S DISEASE
     Dosage: DOSE: 4000.00?FREQUENCY: Q2
     Route: 042
     Dates: start: 20130402
  2. FOSAMAX [Concomitant]
     Active Substance: ALENDRONATE SODIUM
     Indication: OSTEOPOROSIS
     Dosage: SINCE FALL 2012
     Route: 065
     Dates: start: 2012
  3. FORTEO [Concomitant]
     Active Substance: TERIPARATIDE
     Indication: OSTEOPOROSIS
     Route: 065

REACTIONS (2)
  - Loose tooth [Unknown]
  - Episcleritis [Recovered/Resolved]

NARRATIVE: CASE EVENT DATE: 20171225
